FAERS Safety Report 11800672 (Version 2)
Quarter: 2015Q4

REPORT INFORMATION
  Report Type: Spontaneous
  Country: FR (occurrence: FR)
  Receive Date: 20151204
  Receipt Date: 20151211
  Transmission Date: 20160305
  Serious: Yes (Hospitalization, Other)
  Sender: FDA-Public Use
  Company Number: FR-ROCHE-1672112

PATIENT

DRUGS (1)
  1. LUCENTIS [Suspect]
     Active Substance: RANIBIZUMAB
     Indication: AGE-RELATED MACULAR DEGENERATION
     Route: 050
     Dates: start: 20151012

REACTIONS (4)
  - Vitreous haemorrhage [Recovered/Resolved with Sequelae]
  - Retinal tear [Unknown]
  - Retinal injury [Recovered/Resolved with Sequelae]
  - Visual acuity reduced [Unknown]
